FAERS Safety Report 24031718 (Version 1)
Quarter: 2024Q2

REPORT INFORMATION
  Report Type: Spontaneous
  Country: AU (occurrence: AU)
  Receive Date: 20240629
  Receipt Date: 20240629
  Transmission Date: 20240716
  Serious: Yes (Hospitalization, Other)
  Sender: FDA-Public Use
  Company Number: AU-009507513-2406AUS008823

PATIENT
  Age: 87 Year
  Sex: Male

DRUGS (1)
  1. PEMBROLIZUMAB [Suspect]
     Active Substance: PEMBROLIZUMAB
     Indication: Gastrointestinal carcinoma
     Dosage: UNK
     Dates: end: 202308

REACTIONS (3)
  - Immune-mediated lung disease [Unknown]
  - Pneumomediastinum [Unknown]
  - Immune-mediated enterocolitis [Unknown]

NARRATIVE: CASE EVENT DATE: 20240101
